FAERS Safety Report 8229229-1 (Version None)
Quarter: 2012Q1

REPORT INFORMATION
  Report Type: 
  Country: None (occurrence: None)
  Receive Date: 20120322
  Receipt Date: 20120315
  Transmission Date: 20120608
  Serious: Yes (Hospitalization)
  Sender: FDA-Public Use
  Company Number: DE-JNJFOC-20120308371

PATIENT
  Sex: Female
  Weight: 67.3 kg

DRUGS (8)
  1. METHOTREXATE [Suspect]
     Indication: JUVENILE ARTHRITIS
     Route: 048
     Dates: start: 20101215
  2. DICLOFENAC SODIUM [Concomitant]
     Route: 048
  3. GOLIMUMAB [Suspect]
     Route: 058
     Dates: start: 20120309
  4. GOLIMUMAB [Suspect]
     Indication: JUVENILE ARTHRITIS
     Route: 058
     Dates: start: 20110502
  5. ACETAMINOPHEN [Concomitant]
     Route: 048
     Dates: start: 20120202
  6. ESOMEPRAZOLE SODIUM [Concomitant]
     Route: 048
     Dates: start: 20110502
  7. FOLIC ACID [Concomitant]
     Route: 048
  8. PREDNISONE TAB [Concomitant]
     Route: 048

REACTIONS (2)
  - JUVENILE ARTHRITIS [None]
  - UPPER RESPIRATORY TRACT INFECTION [None]
